FAERS Safety Report 7903582-8 (Version None)
Quarter: 2011Q4

REPORT INFORMATION
  Report Type: 
  Country: None (occurrence: None)
  Receive Date: 20111109
  Receipt Date: 20111109
  Transmission Date: 20120403
  Serious: Yes (Other)
  Sender: FDA-Public Use
  Company Number: None

PATIENT
  Age: 53 Year
  Sex: Female
  Weight: 87.089 kg

DRUGS (1)
  1. SAVELLA [Suspect]
     Indication: FIBROMYALGIA
     Dosage: 12.5 MG TITRATION PACK
     Route: 048
     Dates: start: 20110930, end: 20111001

REACTIONS (3)
  - QUALITY OF LIFE DECREASED [None]
  - SLEEP DISORDER [None]
  - ARRHYTHMIA [None]
